FAERS Safety Report 6595741-4 (Version None)
Quarter: 2010Q1

REPORT INFORMATION
  Report Type: 
  Country: None (occurrence: None)
  Receive Date: 20100219
  Receipt Date: 20100219
  Transmission Date: 20100710
  Serious: No
  Sender: FDA-Public Use
  Company Number: None

PATIENT
  Sex: Female
  Weight: 71.2147 kg

DRUGS (1)
  1. ULORIC [Suspect]
     Indication: GOUT
     Dosage: 10MG 1 A DAY

REACTIONS (4)
  - ABASIA [None]
  - CONDITION AGGRAVATED [None]
  - GAIT DISTURBANCE [None]
  - GOUT [None]
